FAERS Safety Report 8569405-1 (Version None)
Quarter: 2012Q3

REPORT INFORMATION
  Report Type: 
  Country: None (occurrence: None)
  Receive Date: 20120803
  Receipt Date: 20120428
  Transmission Date: 20120928
  Serious: No
  Sender: FDA-Public Use
  Company Number: US-ABBOTT-12P-163-0930380-00

PATIENT
  Sex: Male
  Weight: 65.83 kg

DRUGS (1)
  1. NIASPAN [Suspect]
     Indication: HIGH DENSITY LIPOPROTEIN DECREASED
     Dosage: ONE AFTER BREAKFAST; ONE AFTER DINNER
     Dates: start: 20110101

REACTIONS (1)
  - OEDEMA PERIPHERAL [None]
